FAERS Safety Report 11692634 (Version 1)
Quarter: 2015Q4

REPORT INFORMATION
  Report Type: Spontaneous
  Country: US (occurrence: US)
  Receive Date: 20151103
  Receipt Date: 20151103
  Transmission Date: 20160304
  Serious: No
  Sender: FDA-Public Use
  Company Number: US-BAYER-2015-458369

PATIENT
  Age: 62 Year
  Sex: Female
  Weight: 104.31 kg

DRUGS (1)
  1. ALEVE [Suspect]
     Active Substance: NAPROXEN SODIUM
     Indication: ANALGESIC THERAPY
     Dosage: 2 DF, QOD OR QD
     Route: 048
     Dates: start: 201510

REACTIONS (1)
  - Product use issue [None]

NARRATIVE: CASE EVENT DATE: 201510
